FAERS Safety Report 4395586-X (Version None)
Quarter: 2004Q3

REPORT INFORMATION
  Report Type: 
  Country: None (occurrence: None)
  Receive Date: 20040708
  Receipt Date: 20040629
  Transmission Date: 20050211
  Serious: Yes (Death)
  Sender: FDA-Public Use
  Company Number: T04-USA-03712-01

PATIENT
  Age: 83 Year
  Sex: Male

DRUGS (3)
  1. CELEXA [Suspect]
     Indication: DEPRESSION
  2. CELEXA [Suspect]
     Indication: DEPRESSION
  3. GALANTAMINE [Suspect]
     Indication: MEMORY IMPAIRMENT
     Dosage: 1 TABLET BID
     Dates: start: 20010827, end: 20011003

REACTIONS (16)
  - AORTIC ATHEROSCLEROSIS [None]
  - ATHEROSCLEROSIS [None]
  - CARDIAC VENTRICULAR DISORDER [None]
  - CAROTID ARTERY STENOSIS [None]
  - CERVICAL VERTEBRAL FRACTURE [None]
  - COMPLETED SUICIDE [None]
  - CORONARY ARTERY ATHEROSCLEROSIS [None]
  - DRUG LEVEL INCREASED [None]
  - DRUG SCREEN POSITIVE [None]
  - ECCHYMOSIS [None]
  - EXCORIATION [None]
  - EXTRAVASATION BLOOD [None]
  - FIBROSIS [None]
  - GUN SHOT WOUND [None]
  - MYOCARDIAL FIBROSIS [None]
  - PULMONARY CONGESTION [None]
